FAERS Safety Report 19422310 (Version 1)
Quarter: 2021Q2

REPORT INFORMATION
  Report Type: Report from Study
  Country: US (occurrence: US)
  Receive Date: 20210616
  Receipt Date: 20210616
  Transmission Date: 20210717
  Serious: Yes (Hospitalization, Other)
  Sender: FDA-Public Use
  Company Number: NVSC2017US013747

PATIENT
  Age: 7 Year
  Sex: Female
  Weight: 66.4 kg

DRUGS (57)
  1. SANDIMMUNE [Suspect]
     Active Substance: CYCLOSPORINE
     Dosage: 100 MG, QD
     Route: 065
     Dates: start: 20160309, end: 20160819
  2. SANDIMMUNE [Suspect]
     Active Substance: CYCLOSPORINE
     Dosage: UNK
     Route: 065
     Dates: start: 20160706
  3. SANDIMMUNE [Suspect]
     Active Substance: CYCLOSPORINE
     Dosage: 100 MG, QD
     Route: 065
     Dates: start: 20160826, end: 20160906
  4. ACTEMRA [Suspect]
     Active Substance: TOCILIZUMAB
     Dosage: 460 MG, UNKNOWN
     Route: 041
     Dates: start: 20170628
  5. KINERET [Suspect]
     Active Substance: ANAKINRA
     Indication: HYPERTENSION
     Dosage: 100 MG, QD
     Route: 065
     Dates: start: 20160211, end: 20160224
  6. LORATADINE. [Concomitant]
     Active Substance: LORATADINE
     Indication: SEASONAL ALLERGY
  7. MEDROL [Concomitant]
     Active Substance: METHYLPREDNISOLONE
     Dosage: 38 MG, QD
     Route: 065
  8. PREDNISOLONE ACETATE. [Concomitant]
     Active Substance: PREDNISOLONE ACETATE
     Indication: UVEITIS
     Dosage: 3 DRP, QD
     Route: 047
     Dates: start: 201512
  9. BENADRYL [Concomitant]
     Active Substance: DIPHENHYDRAMINE HYDROCHLORIDE
     Indication: PREMEDICATION
     Dosage: 25 MG, UNKNOWN
     Route: 065
     Dates: start: 20160706, end: 20160706
  10. NEORAL [Suspect]
     Active Substance: CYCLOSPORINE
     Indication: STILL^S DISEASE
     Dosage: 100 MG, QD
     Route: 065
     Dates: start: 20160113, end: 20160211
  11. NEORAL [Suspect]
     Active Substance: CYCLOSPORINE
     Dosage: 150 MG, QD
     Route: 065
     Dates: start: 20160211, end: 20160509
  12. ACTEMRA [Suspect]
     Active Substance: TOCILIZUMAB
     Dosage: 460 MG, QD
     Route: 041
     Dates: start: 20170322, end: 20170419
  13. FERROUS SULFATE. [Concomitant]
     Active Substance: FERROUS SULFATE
     Indication: ANAEMIA
     Dosage: 325 MG, QD
     Route: 065
     Dates: start: 201601
  14. PREDNISONE. [Concomitant]
     Active Substance: PREDNISONE
     Indication: STILL^S DISEASE
     Dosage: 40 MG, QD
     Route: 065
     Dates: start: 20160429
  15. HUMIRA [Suspect]
     Active Substance: ADALIMUMAB
     Indication: STILL^S DISEASE
     Dosage: 40 MG, QD
     Route: 065
     Dates: start: 20160106, end: 20160113
  16. LORATADINE. [Concomitant]
     Active Substance: LORATADINE
     Indication: RHINITIS ALLERGIC
     Dosage: 10 MG, QD
     Route: 065
     Dates: start: 20161018
  17. OMEPRAZOLE. [Concomitant]
     Active Substance: OMEPRAZOLE
     Indication: GASTROINTESTINAL DISORDER PROPHYLAXIS
     Dosage: 40 MG, UNKNOWN
     Route: 065
     Dates: start: 201509
  18. OMEPRAZOLE. [Concomitant]
     Active Substance: OMEPRAZOLE
     Dosage: 40 MG, UNKNOWN
     Route: 065
     Dates: start: 20170214
  19. PREDNISONE. [Concomitant]
     Active Substance: PREDNISONE
     Indication: PREMEDICATION
     Dosage: 20 MG
     Route: 065
     Dates: start: 20160706, end: 20160706
  20. DIPHENHYDRAMINE. [Concomitant]
     Active Substance: DIPHENHYDRAMINE
     Indication: PRODUCT USED FOR UNKNOWN INDICATION
     Dosage: UNK
     Route: 065
     Dates: start: 20160706, end: 20160706
  21. TYLENOL [Concomitant]
     Active Substance: ACETAMINOPHEN
     Indication: PRODUCT USED FOR UNKNOWN INDICATION
     Dosage: 812.5 MG, UNKNOWN
     Route: 065
     Dates: start: 20160706, end: 20160706
  22. SANDIMMUNE [Suspect]
     Active Substance: CYCLOSPORINE
     Dosage: 100 MG, QD
     Route: 065
     Dates: start: 20160412
  23. NAPROSYN [Suspect]
     Active Substance: NAPROXEN
     Dosage: 500 MG, QD
     Route: 065
     Dates: start: 20160113, end: 20160413
  24. NAPROSYN [Suspect]
     Active Substance: NAPROXEN
     Dosage: 500 MG, UNKNOWN
     Route: 065
     Dates: start: 20160420
  25. CLOTRIMAZOLE. [Concomitant]
     Active Substance: CLOTRIMAZOLE
     Indication: GENITAL RASH
     Dosage: 1 DF, QD (1 APPLICATION)
     Route: 065
     Dates: start: 20170524
  26. NEORAL [Suspect]
     Active Substance: CYCLOSPORINE
     Dosage: 100 MG, QD
     Route: 065
     Dates: start: 20160826, end: 20160906
  27. GENGRAF [Suspect]
     Active Substance: CYCLOSPORINE
     Dosage: 100 MG, QD
     Route: 065
     Dates: start: 20160412
  28. VOLTAREN [Suspect]
     Active Substance: DICLOFENAC SODIUM
     Indication: STILL^S DISEASE
     Dosage: 100 MG, QD
     Route: 065
     Dates: start: 20151209, end: 20160113
  29. ACTEMRA [Suspect]
     Active Substance: TOCILIZUMAB
     Dosage: 460 MG, QD
     Route: 041
     Dates: start: 20170419, end: 20170420
  30. MEDROL [Concomitant]
     Active Substance: METHYLPREDNISOLONE
     Indication: STILL^S DISEASE
     Dosage: 40 MG, QD
     Route: 065
  31. RANITIDINE. [Concomitant]
     Active Substance: RANITIDINE
     Indication: ABDOMINAL PAIN
     Dosage: 75 MG, QD
     Route: 065
     Dates: start: 20170524
  32. ILARIS [Suspect]
     Active Substance: CANAKINUMAB
     Dosage: 180 MG, QD
     Route: 065
     Dates: start: 20160428, end: 20160608
  33. SANDIMMUNE [Suspect]
     Active Substance: CYCLOSPORINE
     Indication: STILL^S DISEASE
     Dosage: 100 MG, QD
     Route: 065
     Dates: start: 20160113, end: 20160211
  34. NEORAL [Suspect]
     Active Substance: CYCLOSPORINE
     Dosage: UNK
     Route: 065
     Dates: start: 20160706
  35. GENGRAF [Suspect]
     Active Substance: CYCLOSPORINE
     Indication: STILL^S DISEASE
     Dosage: 100 MG, QD
     Route: 065
     Dates: start: 20160113, end: 20160211
  36. GENGRAF [Suspect]
     Active Substance: CYCLOSPORINE
     Dosage: 150 MG, QD
     Route: 065
     Dates: start: 20160211, end: 20160509
  37. GENGRAF [Suspect]
     Active Substance: CYCLOSPORINE
     Dosage: 100 MG, QD
     Route: 065
     Dates: start: 20160826, end: 20160906
  38. RELAFEN [Suspect]
     Active Substance: NABUMETONE
     Indication: STILL^S DISEASE
     Dosage: 500 MG, QD
     Route: 065
     Dates: start: 20151028, end: 20151118
  39. RELAFEN [Suspect]
     Active Substance: NABUMETONE
     Dosage: 750 MG, QD
     Route: 065
     Dates: start: 20151118, end: 20151209
  40. NAPROSYN [Suspect]
     Active Substance: NAPROXEN
     Indication: JUVENILE IDIOPATHIC ARTHRITIS
     Dosage: 500 MG, UNKNOWN
     Route: 065
     Dates: start: 20150901, end: 20151028
  41. ACTEMRA [Suspect]
     Active Substance: TOCILIZUMAB
     Dosage: UNK
     Route: 041
     Dates: start: 20160706
  42. ACTEMRA [Suspect]
     Active Substance: TOCILIZUMAB
     Dosage: 460 MG, QD
     Route: 041
     Dates: start: 20160823, end: 20170419
  43. FERROUS SULFATE. [Concomitant]
     Active Substance: FERROUS SULFATE
     Dosage: 325 MG, QD
     Route: 065
     Dates: start: 20160803
  44. OMEPRAZOLE. [Concomitant]
     Active Substance: OMEPRAZOLE
     Indication: NAUSEA
     Dosage: 40 MG, QD
     Route: 065
     Dates: start: 201509, end: 20160413
  45. SANDIMMUNE [Suspect]
     Active Substance: CYCLOSPORINE
     Dosage: 150 MG, QD
     Route: 065
     Dates: start: 20160211, end: 20160509
  46. NEORAL [Suspect]
     Active Substance: CYCLOSPORINE
     Dosage: 100 MG, QD
     Route: 065
     Dates: start: 20160309, end: 20160819
  47. PREDNISONE. [Concomitant]
     Active Substance: PREDNISONE
     Dosage: 5 MG, QD
     Route: 065
     Dates: start: 20170208
  48. MEDROL [Concomitant]
     Active Substance: METHYLPREDNISOLONE
     Dosage: 20 MG, UNKNOWN
     Route: 065
     Dates: start: 20160430
  49. ILARIS [Suspect]
     Active Substance: CANAKINUMAB
     Indication: STILL^S DISEASE
     Dosage: 180 MG, QD
     Route: 065
     Dates: start: 20160325, end: 20160413
  50. NEORAL [Suspect]
     Active Substance: CYCLOSPORINE
     Dosage: 100 MG, QD
     Route: 065
     Dates: start: 20160412
  51. GENGRAF [Suspect]
     Active Substance: CYCLOSPORINE
     Dosage: 100 MG, QD
     Route: 065
     Dates: start: 20160309, end: 20160819
  52. GENGRAF [Suspect]
     Active Substance: CYCLOSPORINE
     Dosage: UNK
     Route: 065
     Dates: start: 20160706
  53. ACTEMRA [Suspect]
     Active Substance: TOCILIZUMAB
     Indication: STILL^S DISEASE
     Dosage: 500 MG, QD
     Route: 041
     Dates: start: 20160621, end: 20160719
  54. KINERET [Suspect]
     Active Substance: ANAKINRA
     Indication: JUVENILE IDIOPATHIC ARTHRITIS
     Dosage: 100 MG, QD
     Route: 065
     Dates: start: 20160113, end: 20160211
  55. OMEPRAZOLE. [Concomitant]
     Active Substance: OMEPRAZOLE
     Dosage: 40 MG, UNKNOWN
     Route: 065
     Dates: start: 201603
  56. PREDNISONE. [Concomitant]
     Active Substance: PREDNISONE
     Dosage: 5 MG, UNKNOWN
     Route: 065
     Dates: start: 20170510
  57. TRI?VITAMIN [Concomitant]
     Indication: VITAMIN SUPPLEMENTATION
     Dosage: 1935 MG, QD (1500?35?400 MG)
     Route: 065
     Dates: start: 20160912

REACTIONS (40)
  - Tenderness [Unknown]
  - Escherichia urinary tract infection [Recovered/Resolved]
  - Flank pain [Unknown]
  - Weight increased [Unknown]
  - Paronychia [Recovered/Resolved]
  - Blood urea increased [Unknown]
  - Hepatic steatosis [Unknown]
  - Alanine aminotransferase increased [Unknown]
  - Paronychia [Recovered/Resolved]
  - Rash erythematous [Unknown]
  - Swelling [Unknown]
  - Paronychia [Recovered/Resolved]
  - Oropharyngeal pain [Unknown]
  - Dizziness [Unknown]
  - Onychalgia [Unknown]
  - Erythema [Unknown]
  - Chills [Unknown]
  - Aspartate aminotransferase increased [Unknown]
  - Arthralgia [Recovering/Resolving]
  - Blood glucose increased [Unknown]
  - Infection [Recovered/Resolved]
  - Gait inability [Recovering/Resolving]
  - Cough [Unknown]
  - Pyrexia [Recovered/Resolved]
  - Abdominal pain [Unknown]
  - Nail bed bleeding [Recovered/Resolved]
  - Joint swelling [Recovering/Resolving]
  - Hypertension [Recovered/Resolved]
  - Splenomegaly [Unknown]
  - Disorientation [Unknown]
  - Wound secretion [Unknown]
  - Dysuria [Unknown]
  - Headache [Unknown]
  - Onychalgia [Recovered/Resolved]
  - Hepatomegaly [Unknown]
  - Iron deficiency anaemia [Recovered/Resolved]
  - Activated partial thromboplastin time shortened [Unknown]
  - Obesity [Unknown]
  - Fatigue [Unknown]
  - Inflammation [Unknown]

NARRATIVE: CASE EVENT DATE: 20160413
